FAERS Safety Report 7719712-7 (Version None)
Quarter: 2011Q3

REPORT INFORMATION
  Report Type: 
  Country: None (occurrence: None)
  Receive Date: 20110830
  Receipt Date: 20100118
  Transmission Date: 20111222
  Serious: Yes (Other)
  Sender: FDA-Public Use
  Company Number: PHHY2010TW54299

PATIENT
  Sex: Female

DRUGS (1)
  1. GLEEVEC [Suspect]
     Indication: CHRONIC MYELOID LEUKAEMIA
     Dosage: 400 MG, UNK
     Route: 048
     Dates: start: 20061122

REACTIONS (5)
  - CYSTIC LYMPHANGIOMA [None]
  - THYROID CYST [None]
  - EYE HAEMORRHAGE [None]
  - OVARIAN CYST [None]
  - EYE IRRITATION [None]
